FAERS Safety Report 10626385 (Version 3)
Quarter: 2015Q2

REPORT INFORMATION
  Report Type: Spontaneous
  Country: None (occurrence: JP)
  Receive Date: 20141204
  Receipt Date: 20150402
  Transmission Date: 20150821
  Serious: Yes (Hospitalization)
  Sender: FDA-Public Use
  Company Number: JP-SANNOVA-201406548

PATIENT
  Age: 35 Year
  Sex: Male
  Weight: 52 kg

DRUGS (5)
  1. SAIKOKEISHITO [Concomitant]
     Active Substance: HERBALS
  2. LUNESTA [Suspect]
     Active Substance: ESZOPICLONE
     Indication: INSOMNIA
     Route: 048
     Dates: start: 20141031, end: 20141106
  3. MYSLEE [Concomitant]
     Active Substance: ZOLPIDEM TARTRATE
     Indication: INSOMNIA
  4. BUFFERIN /01754001/ [Concomitant]
     Active Substance: ASPIRIN\HYDROTALCITE
  5. LORAZEPAM. [Concomitant]
     Active Substance: LORAZEPAM

REACTIONS (2)
  - Dysarthria [Recovered/Resolved]
  - Memory impairment [Recovered/Resolved]

NARRATIVE: CASE EVENT DATE: 20141106
